FAERS Safety Report 7819126-5 (Version None)
Quarter: 2011Q4

REPORT INFORMATION
  Report Type: 
  Country: None (occurrence: None)
  Receive Date: 20111018
  Receipt Date: 20111010
  Transmission Date: 20120403
  Serious: Yes (Other)
  Sender: FDA-Public Use
  Company Number: PHHY2011GB87186

PATIENT
  Age: 83 Year
  Sex: Male

DRUGS (2)
  1. LIPITOR [Concomitant]
  2. SIMVASTATIN [Suspect]
     Route: 065

REACTIONS (2)
  - ASTHMA [None]
  - ARTHRALGIA [None]
